FAERS Safety Report 21119816 (Version 1)
Quarter: 2022Q3

REPORT INFORMATION
  Report Type: Spontaneous
  Country: US (occurrence: None)
  Receive Date: 20220721
  Receipt Date: 20220721
  Transmission Date: 20221027
  Serious: No
  Sender: FDA-Public Use
  Company Number: None

PATIENT
  Age: 40 Year
  Sex: Female
  Weight: 129.73 kg

DRUGS (21)
  1. ELURYNG [Suspect]
     Active Substance: ETHINYL ESTRADIOL\ETONOGESTREL
  2. BUPROPION [Concomitant]
     Active Substance: BUPROPION
  3. DULOXETINE [Concomitant]
     Active Substance: DULOXETINE
  4. FAMOTIDINE [Concomitant]
     Active Substance: FAMOTIDINE
  5. ELURYNG [Concomitant]
     Active Substance: ETHINYL ESTRADIOL\ETONOGESTREL
  6. NABUMETONE [Concomitant]
     Active Substance: NABUMETONE
  7. ATENOLOL [Concomitant]
     Active Substance: ATENOLOL
  8. OXYBUTYNIN [Concomitant]
     Active Substance: OXYBUTYNIN
  9. GABAPENTIN [Concomitant]
     Active Substance: GABAPENTIN
  10. PRAZOSIN [Concomitant]
     Active Substance: PRAZOSIN
  11. MORPHINE [Concomitant]
     Active Substance: MORPHINE
  12. OXYCODONE [Concomitant]
     Active Substance: OXYCODONE
  13. TIZANIDINE [Concomitant]
     Active Substance: TIZANIDINE
  14. LEVOTHYROXINE [Concomitant]
     Active Substance: LEVOTHYROXINE
  15. LORAZEPAM [Concomitant]
     Active Substance: LORAZEPAM
  16. Omega-3 ethyl ester [Concomitant]
  17. HYDROXYZINE [Concomitant]
     Active Substance: HYDROXYZINE HYDROCHLORIDE
  18. TYLENOL EXTRA STRENGTH [Concomitant]
     Active Substance: ACETAMINOPHEN
  19. PEPTO-BISMOL [Concomitant]
     Active Substance: BISMUTH SUBSALICYLATE
  20. generic Gas-X [Concomitant]
  21. VITAMIN B COMPLEX [Concomitant]
     Active Substance: CYANOCOBALAMIN\DEXPANTHENOL\NIACINAMIDE\PYRIDOXINE HYDROCHLORIDE\RIBOFLAVIN 5^-PHOSPHATE SODIUM\THIA

REACTIONS (3)
  - Device breakage [None]
  - Vulvovaginal pain [None]
  - Vulvovaginal discomfort [None]

NARRATIVE: CASE EVENT DATE: 20220717
